FAERS Safety Report 5145451-5 (Version None)
Quarter: 2006Q4

REPORT INFORMATION
  Report Type: 
  Country: None (occurrence: None)
  Receive Date: 20061101
  Receipt Date: 20061020
  Transmission Date: 20070319
  Serious: Yes (Hospitalization)
  Sender: FDA-Public Use
  Company Number: 20063261

PATIENT
  Sex: Female

DRUGS (1)
  1. LIORESAL [Suspect]
     Indication: MUSCLE SPASTICITY
     Dosage: MCG, DAILY, INTRATHECAL
     Route: 037

REACTIONS (6)
  - ABDOMINAL PAIN [None]
  - BURNING SENSATION [None]
  - CATHETER RELATED COMPLICATION [None]
  - DEVICE CONNECTION ISSUE [None]
  - DRUG EFFECT DECREASED [None]
  - PERONEAL NERVE PALSY [None]
